FAERS Safety Report 14126459 (Version 2)
Quarter: 2018Q2

REPORT INFORMATION
  Report Type: Not Available
  Country: US (occurrence: US)
  Receive Date: 20171025
  Receipt Date: 20180419
  Transmission Date: 20180711
  Serious: No
  Sender: FDA-Public Use
  Company Number: US-NEUROCRINE BIOSCIENCES INC.-2017NBI00757

PATIENT
  Age: 48 Year
  Sex: Male
  Weight: 92.62 kg

DRUGS (29)
  1. PRAZOSIN. [Concomitant]
     Active Substance: PRAZOSIN
     Indication: GENERALISED ANXIETY DISORDER
     Route: 048
  2. LURASIDONE [Concomitant]
     Active Substance: LURASIDONE
     Dosage: IN THE MORNING
     Route: 048
     Dates: start: 20160616, end: 20171005
  3. METOPROLOL. [Concomitant]
     Active Substance: METOPROLOL
     Dosage: IN THE MORNING
     Route: 048
     Dates: end: 20170705
  4. LATUDA [Concomitant]
     Active Substance: LURASIDONE HYDROCHLORIDE
     Route: 048
     Dates: start: 20140703, end: 20150903
  5. INGREZZA [Suspect]
     Active Substance: VALBENAZINE
     Route: 048
     Dates: end: 20180108
  6. LISINOPRIL. [Concomitant]
     Active Substance: LISINOPRIL
     Dosage: IN THE MORNING
     Route: 048
  7. LATUDA [Concomitant]
     Active Substance: LURASIDONE HYDROCHLORIDE
     Route: 048
     Dates: start: 20150903, end: 20150903
  8. ONDANSETRON [Concomitant]
     Active Substance: ONDANSETRON
  9. LURASIDONE [Concomitant]
     Active Substance: LURASIDONE
     Dosage: AT BEDTIME
     Route: 048
     Dates: start: 20171005
  10. KALETRA [Concomitant]
     Active Substance: LOPINAVIR\RITONAVIR
     Dosage: 200-50 MG; FOUR ONCE DAILY
     Route: 048
     Dates: end: 20170705
  11. CLONAZEPAM. [Concomitant]
     Active Substance: CLONAZEPAM
     Route: 048
     Dates: start: 20150507
  12. LAMICTAL [Concomitant]
     Active Substance: LAMOTRIGINE
     Route: 048
  13. ZONISAMIDE. [Concomitant]
     Active Substance: ZONISAMIDE
     Indication: SEIZURE
     Route: 048
  14. VITAMIN D [Concomitant]
     Active Substance: CHOLECALCIFEROL
  15. BENZTROPINE MESYLATE. [Concomitant]
     Active Substance: BENZTROPINE MESYLATE
     Dosage: HALF - ONE TAB AT BEDTIME FOR 7 DAYS THEN 1/2 TAB EVERY OTHER DAY FOR 7 DAYS THEN STOP
     Route: 048
     Dates: start: 20161229, end: 20170803
  16. LATUDA [Concomitant]
     Active Substance: LURASIDONE HYDROCHLORIDE
     Dosage: 1 PO IN THE MORNING
     Route: 048
     Dates: start: 20160616, end: 20171005
  17. PRAZOSIN. [Concomitant]
     Active Substance: PRAZOSIN
     Indication: NIGHTMARE
     Route: 048
     Dates: end: 20180110
  18. GENVOYA [Concomitant]
     Active Substance: COBICISTAT\ELVITEGRAVIR\EMTRICITABINE\TENOFOVIR ALAFENAMIDE FUMARATE
  19. ASPIRIN. [Concomitant]
     Active Substance: ASPIRIN
     Dosage: IN THE MORNING
     Route: 048
     Dates: start: 20170302, end: 20180102
  20. CLONAZEPAM. [Concomitant]
     Active Substance: CLONAZEPAM
     Indication: ANXIETY
     Dosage: AS REQUIRED
     Route: 048
     Dates: start: 20140731, end: 20140731
  21. LATUDA [Concomitant]
     Active Substance: LURASIDONE HYDROCHLORIDE
     Route: 048
     Dates: start: 20150903, end: 20160602
  22. LATUDA [Concomitant]
     Active Substance: LURASIDONE HYDROCHLORIDE
     Dosage: AT BEDTIME
     Route: 048
     Dates: start: 20171005
  23. PRAZOSIN. [Concomitant]
     Active Substance: PRAZOSIN
     Indication: BLOOD PRESSURE MEASUREMENT
     Route: 048
     Dates: end: 20171102
  24. INGREZZA [Suspect]
     Active Substance: VALBENAZINE
     Indication: TARDIVE DYSKINESIA
     Route: 048
     Dates: start: 20170705, end: 20171005
  25. CLONAZEPAM. [Concomitant]
     Active Substance: CLONAZEPAM
     Dosage: 1/2 - 1 DAILY PRN
     Route: 048
     Dates: start: 20160324, end: 20160421
  26. TRUVADA [Concomitant]
     Active Substance: EMTRICITABINE\TENOFOVIR DISOPROXIL FUMARATE
     Dosage: 200-300 MG
     Route: 048
  27. MULTI VITAMINS/MINERALS [Concomitant]
     Route: 048
     Dates: start: 20150514
  28. FIORICET [Concomitant]
     Active Substance: ACETAMINOPHEN\BUTALBITAL\CAFFEINE
  29. ASPIRIN. [Concomitant]
     Active Substance: ASPIRIN
     Route: 048

REACTIONS (5)
  - Somnolence [Recovered/Resolved]
  - Aura [Recovered/Resolved]
  - Dizziness [Recovered/Resolved]
  - Lethargy [Recovered/Resolved]
  - Hypersensitivity [Unknown]

NARRATIVE: CASE EVENT DATE: 20170822
